FAERS Safety Report 8838366 (Version 3)
Quarter: 2012Q4

REPORT INFORMATION
  Report Type: 
  Country: BE (occurrence: BE)
  Receive Date: 20121012
  Receipt Date: 20121106
  Transmission Date: 20130627
  Serious: Yes (Death, Other)
  Sender: FDA-Public Use
  Company Number: BE-JNJFOC-20121003120

PATIENT
  Age: 81 Year
  Sex: Male

DRUGS (3)
  1. REMICADE [Suspect]
     Indication: CROHN^S DISEASE
     Dosage: total of 32 infusions administered
     Route: 042
     Dates: start: 20070404, end: 20120921
  2. IMURAN [Concomitant]
     Dates: end: 20120921
  3. LIPITOR [Concomitant]
     Indication: HYPERCHOLESTEROLAEMIA
     Dates: start: 20081211

REACTIONS (2)
  - Hepatosplenic T-cell lymphoma [Not Recovered/Not Resolved]
  - Neutropenic sepsis [Fatal]
